FAERS Safety Report 5009468-3 (Version None)
Quarter: 2006Q2

REPORT INFORMATION
  Report Type: 
  Country: None (occurrence: None)
  Receive Date: 20060522
  Receipt Date: 20060515
  Transmission Date: 20061013
  Serious: Yes (Life-Threatening, Hospitalization, Other)
  Sender: FDA-Public Use
  Company Number: 2006-05-0041

PATIENT
  Age: 48 Year
  Sex: Male

DRUGS (6)
  1. TEMODAR [Suspect]
     Indication: GLIOBLASTOMA MULTIFORME
     Dosage: 140 MG QD ORAL
     Route: 048
     Dates: start: 20060223, end: 20060329
  2. KEPPRA [Concomitant]
  3. DILANTIN [Concomitant]
  4. PEPCID [Concomitant]
  5. BACTRIM [Concomitant]
  6. RADIATION THERAPY [Concomitant]

REACTIONS (5)
  - DEEP VEIN THROMBOSIS [None]
  - DEPRESSED LEVEL OF CONSCIOUSNESS [None]
  - EPISTAXIS [None]
  - GRAND MAL CONVULSION [None]
  - PANCYTOPENIA [None]
